FAERS Safety Report 7217781-4 (Version None)
Quarter: 2011Q1

REPORT INFORMATION
  Report Type: 
  Country: None (occurrence: None)
  Receive Date: 20110110
  Receipt Date: 20101228
  Transmission Date: 20110831
  Serious: Yes (Hospitalization)
  Sender: FDA-Public Use
  Company Number: PHHY2010FR89390

PATIENT
  Sex: Female

DRUGS (8)
  1. ARICEPT [Concomitant]
  2. OROCAL [Concomitant]
  3. FUROSEMIDE [Concomitant]
  4. TAHOR [Concomitant]
     Dosage: UNK
  5. EFFEXOR [Concomitant]
  6. CARDENSIEL [Concomitant]
  7. PROTELOS [Concomitant]
  8. TEGRETOL [Suspect]
     Indication: FACIAL NEURALGIA
     Dosage: 200 MG, TID
     Route: 048
     Dates: start: 20101208, end: 20101209

REACTIONS (5)
  - VOMITING [None]
  - URINARY INCONTINENCE [None]
  - HEADACHE [None]
  - CONFUSIONAL STATE [None]
  - GRAND MAL CONVULSION [None]
